FAERS Safety Report 16491154 (Version 1)
Quarter: 2019Q2

REPORT INFORMATION
  Report Type: Spontaneous
  Country: US (occurrence: US)
  Receive Date: 20190628
  Receipt Date: 20190628
  Transmission Date: 20190711
  Serious: No
  Sender: FDA-Public Use
  Company Number: US-GALDERMA-US19018061

PATIENT
  Age: 16 Year
  Sex: Female

DRUGS (9)
  1. PROACTIV GREEN TEA MOISTURIZER [Concomitant]
     Active Substance: COSMETICS
     Indication: RASH
     Route: 061
     Dates: start: 20190314
  2. PROACTIV GREEN TEA MOISTURIZER [Concomitant]
     Active Substance: COSMETICS
     Indication: ACNE
  3. FLUTICASONE 50MG [Concomitant]
  4. PROACTIV MD DAILY OIL CONTROL SPF 30 [Suspect]
     Active Substance: AVOBENZONE\OCTISALATE\OCTOCRYLENE
     Indication: RASH
     Route: 061
     Dates: start: 20190314
  5. PROACTIV MD DAILY OIL CONTROL SPF 30 [Suspect]
     Active Substance: AVOBENZONE\OCTISALATE\OCTOCRYLENE
     Indication: ACNE
  6. PROACTIV MD ADAPALENE ACNE TREATMENT [Suspect]
     Active Substance: ADAPALENE
     Indication: RASH
     Dosage: 0.1%
     Route: 061
     Dates: start: 20190314
  7. PROACTIV MD DEEP CLEANSING FACE WASH [Concomitant]
     Active Substance: COSMETICS
     Indication: RASH
     Route: 061
     Dates: start: 20190314
  8. PROACTIV MD DEEP CLEANSING FACE WASH [Concomitant]
     Active Substance: COSMETICS
     Indication: ACNE
  9. PROACTIV MD ADAPALENE ACNE TREATMENT [Suspect]
     Active Substance: ADAPALENE
     Indication: ACNE

REACTIONS (8)
  - Skin burning sensation [Not Recovered/Not Resolved]
  - Product use in unapproved indication [Recovered/Resolved]
  - Erythema [Not Recovered/Not Resolved]
  - Skin tightness [Not Recovered/Not Resolved]
  - Dry skin [Not Recovered/Not Resolved]
  - Skin fragility [Not Recovered/Not Resolved]
  - Pain of skin [Not Recovered/Not Resolved]
  - Skin irritation [Not Recovered/Not Resolved]

NARRATIVE: CASE EVENT DATE: 20190314
